FAERS Safety Report 7982136-1 (Version None)
Quarter: 2011Q4

REPORT INFORMATION
  Report Type: 
  Country: None (occurrence: None)
  Receive Date: 20111215
  Receipt Date: 20111212
  Transmission Date: 20120403
  Serious: Yes (Death)
  Sender: FDA-Public Use
  Company Number: TN-SANOFI-AVENTIS-2011SA081655

PATIENT
  Age: 61 Year
  Sex: Male

DRUGS (4)
  1. LANSOPRAZOLE [Concomitant]
     Route: 048
     Dates: end: 20110523
  2. PLAVIX [Suspect]
     Route: 048
     Dates: start: 20101222, end: 20110523
  3. PLAVIX [Suspect]
     Route: 048
     Dates: start: 20101222, end: 20110523
  4. ASPEGIC 325 [Concomitant]
     Route: 048
     Dates: end: 20110523

REACTIONS (1)
  - NEOPLASM MALIGNANT [None]
